FAERS Safety Report 6359548-5 (Version None)
Quarter: 2009Q3

REPORT INFORMATION
  Report Type: 
  Country: None (occurrence: None)
  Receive Date: 20090917
  Receipt Date: 20090910
  Transmission Date: 20100115
  Serious: Yes (Hospitalization)
  Sender: FDA-Public Use
  Company Number: CO-ELI_LILLY_AND_COMPANY-CO200909002459

PATIENT
  Age: 80 Year
  Sex: Female

DRUGS (3)
  1. HUMALOG MIX 75/25 [Suspect]
     Indication: TYPE 2 DIABETES MELLITUS
  2. HUMALOG MIX 75/25 [Suspect]
     Dosage: 25 IU, EACH EVENING
     Route: 058
     Dates: start: 20090420
  3. LANTUS [Concomitant]
     Dosage: 30 IU, EACH EVENING
     Route: 065

REACTIONS (7)
  - ABDOMINAL INFECTION [None]
  - ABDOMINAL WALL ABSCESS [None]
  - ASTHENIA [None]
  - CARDIAC FAILURE [None]
  - HAEMATOMA [None]
  - INFLAMMATION [None]
  - RESPIRATORY DISORDER [None]
